FAERS Safety Report 6888534-1 (Version None)
Quarter: 2010Q3

REPORT INFORMATION
  Report Type: 
  Country: None (occurrence: None)
  Receive Date: 20100730
  Receipt Date: 20100720
  Transmission Date: 20110219
  Serious: Yes (Other)
  Sender: FDA-Public Use
  Company Number: SA-WATSON-2010-10083

PATIENT
  Age: 5 Month
  Sex: Male

DRUGS (1)
  1. PYRIDOXINE HYDROCHLORIDE [Suspect]
     Indication: CONVULSION NEONATAL
     Dosage: 200 MG, UNK

REACTIONS (4)
  - BRAIN STEM SYNDROME [None]
  - COMA [None]
  - ELECTROENCEPHALOGRAM ABNORMAL [None]
  - PARADOXICAL DRUG REACTION [None]
